FAERS Safety Report 7559585-9 (Version None)
Quarter: 2011Q2

REPORT INFORMATION
  Report Type: 
  Country: None (occurrence: None)
  Receive Date: 20110609
  Receipt Date: 20110527
  Transmission Date: 20111010
  Serious: No
  Sender: FDA-Public Use
  Company Number: GR-145208

PATIENT

DRUGS (1)
  1. WINRHO [Suspect]
     Indication: IDIOPATHIC THROMBOCYTOPENIC PURPURA
     Dosage: (50 UG/KG INTRAVENOUS (NOT OTHERWISE SPECIFIED))
     Route: 042

REACTIONS (5)
  - HAEMOGLOBIN DECREASED [None]
  - PYREXIA [None]
  - CHILLS [None]
  - ABDOMINAL PAIN [None]
  - HEADACHE [None]
